FAERS Safety Report 8349792-X (Version None)
Quarter: 2012Q2

REPORT INFORMATION
  Report Type: 
  Country: None (occurrence: None)
  Receive Date: 20120510
  Receipt Date: 20120430
  Transmission Date: 20120825
  Serious: Yes (Other)
  Sender: FDA-Public Use
  Company Number: CA-JNJFOC-20120503151

PATIENT
  Sex: Female
  Weight: 57.5 kg

DRUGS (2)
  1. TYLENOL (CAPLET) [Concomitant]
     Indication: PREMEDICATION
     Route: 048
  2. REMICADE [Suspect]
     Indication: CROHN'S DISEASE
     Route: 042
     Dates: start: 20081024

REACTIONS (6)
  - MUSCULAR WEAKNESS [None]
  - DIZZINESS [None]
  - HEADACHE [None]
  - GRIP STRENGTH DECREASED [None]
  - PALPITATIONS [None]
  - FATIGUE [None]
